FAERS Safety Report 7850346-X (Version None)
Quarter: 2011Q4

REPORT INFORMATION
  Report Type: 
  Country: None (occurrence: None)
  Receive Date: 20111024
  Receipt Date: 20111013
  Transmission Date: 20120403
  Serious: Yes (Other)
  Sender: FDA-Public Use
  Company Number: DSU-2011-07603

PATIENT

DRUGS (3)
  1. OLMESARTAN MEDOXOMIL [Suspect]
     Indication: PRODUCT USED FOR UNKNOWN INDICATION
     Dosage: PER ORAL
     Route: 048
  2. METHOTREXATE [Concomitant]
  3. ATENOLOL [Concomitant]

REACTIONS (3)
  - GLAUCOMA [None]
  - CONDITION AGGRAVATED [None]
  - MACULAR DEGENERATION [None]
